FAERS Safety Report 9050482 (Version 1)
Quarter: 2013Q1

REPORT INFORMATION
  Report Type: Report from Study
  Country: AU (occurrence: AU)
  Receive Date: 20130205
  Receipt Date: 20130205
  Transmission Date: 20140127
  Serious: Yes (Hospitalization)
  Sender: FDA-Public Use
  Company Number: AU-JNJFOC-20130117233

PATIENT
  Sex: Male

DRUGS (3)
  1. STELARA [Suspect]
     Indication: PRODUCT USED FOR UNKNOWN INDICATION
     Dosage: 10TH INJECTION
     Route: 058
     Dates: start: 20121122
  2. STELARA [Suspect]
     Indication: PRODUCT USED FOR UNKNOWN INDICATION
     Dosage: TOTAL 4 INJECTIONS
     Route: 058
     Dates: start: 20111222
  3. STELARA [Suspect]
     Indication: PRODUCT USED FOR UNKNOWN INDICATION
     Dosage: TOTAL 5 INJECTIONS
     Route: 058
     Dates: start: 20101223, end: 20111021

REACTIONS (2)
  - Urinary bladder haemorrhage [Unknown]
  - Renal disorder [Unknown]
